FAERS Safety Report 5331976-6 (Version None)
Quarter: 2007Q2

REPORT INFORMATION
  Report Type: 
  Country: None (occurrence: None)
  Receive Date: 20070521
  Receipt Date: 20070510
  Transmission Date: 20071010
  Serious: Yes (Hospitalization)
  Sender: FDA-Public Use
  Company Number: 2007BI010150

PATIENT
  Age: 45 Year
  Sex: Female
  Weight: 99.7913 kg

DRUGS (6)
  1. AVONEX [Suspect]
     Indication: MULTIPLE SCLEROSIS
     Dosage: 30 UG;QW;IM
     Route: 030
     Dates: start: 20051201, end: 20061201
  2. AVONEX [Suspect]
     Indication: MULTIPLE SCLEROSIS
     Dosage: ;IM
     Route: 030
     Dates: start: 20061201, end: 20070201
  3. AVONEX [Suspect]
     Indication: MULTIPLE SCLEROSIS
     Dosage: 30 UG;QW;IM
     Route: 030
     Dates: start: 20070201
  4. DETROL LA [Concomitant]
  5. CLORAZEPATE [Concomitant]
  6. ZOLOFT [Concomitant]

REACTIONS (12)
  - ANIMAL BITE [None]
  - ARTHRALGIA [None]
  - DEPRESSION [None]
  - FATIGUE [None]
  - INFECTION [None]
  - INFLUENZA LIKE ILLNESS [None]
  - JOINT SWELLING [None]
  - MIGRAINE [None]
  - MULTIPLE SCLEROSIS [None]
  - OEDEMA PERIPHERAL [None]
  - SINUSITIS [None]
  - WEIGHT INCREASED [None]
